FAERS Safety Report 8523316-6 (Version None)
Quarter: 2012Q3

REPORT INFORMATION
  Report Type: 
  Country: None (occurrence: None)
  Receive Date: 20120720
  Receipt Date: 20110118
  Transmission Date: 20120928
  Serious: Yes (Hospitalization, Other)
  Sender: FDA-Public Use
  Company Number: US-BAYER-201015419NA

PATIENT
  Age: 37 Year
  Sex: Female
  Weight: 70 kg

DRUGS (7)
  1. ALBUTEROL [Concomitant]
     Route: 055
  2. PREVACID [Concomitant]
  3. YAZ [Suspect]
     Indication: PREMENSTRUAL SYNDROME
  4. NASONEX [Concomitant]
     Route: 065
     Dates: start: 20010101
  5. YAZ [Suspect]
     Indication: CONTRACEPTION
     Route: 048
     Dates: start: 20070129, end: 20081210
  6. CLARITIN [Concomitant]
     Dosage: EARLY 2000'S
     Route: 065
  7. VALTREX [Concomitant]
     Dosage: EARLY 2000'S
     Route: 065

REACTIONS (2)
  - CHOLESTEROSIS [None]
  - ABDOMINAL PAIN UPPER [None]
